FAERS Safety Report 23946719 (Version 6)
Quarter: 2025Q3

REPORT INFORMATION
  Report Type: Spontaneous
  Country: US (occurrence: US)
  Receive Date: 20240606
  Receipt Date: 20250710
  Transmission Date: 20251020
  Serious: Yes (Hospitalization)
  Sender: PFIZER
  Company Number: US-PFIZER INC-PV202400074336

PATIENT
  Age: 84 Year
  Sex: Female

DRUGS (29)
  1. XELJANZ XR [Suspect]
     Active Substance: TOFACITINIB CITRATE
     Indication: Rheumatoid arthritis
     Dosage: 11 MG, 1X/DAY
     Route: 048
  2. IMURAN [Concomitant]
     Active Substance: AZATHIOPRINE
  3. TYLENOL [Concomitant]
     Active Substance: ACETAMINOPHEN
  4. MELOXICAM [Concomitant]
     Active Substance: MELOXICAM
  5. ASPIRIN [Concomitant]
     Active Substance: ASPIRIN
  6. AMOXIL [Concomitant]
     Active Substance: AMOXICILLIN
  7. ATENOLOL [Concomitant]
     Active Substance: ATENOLOL
  8. ALBUTEROL [Concomitant]
     Active Substance: ALBUTEROL
  9. BACLOFEN [Concomitant]
     Active Substance: BACLOFEN
  10. DULOXETINE [Concomitant]
     Active Substance: DULOXETINE
  11. GABAPENTIN [Concomitant]
     Active Substance: GABAPENTIN
  12. HYDROCHLOROTHIAZIDE [Concomitant]
     Active Substance: HYDROCHLOROTHIAZIDE
  13. CALCIUM [Concomitant]
     Active Substance: CALCIUM
  14. CEFDINIR [Concomitant]
     Active Substance: CEFDINIR
  15. ESTRADIOL [Concomitant]
     Active Substance: ESTRADIOL
  16. FLUTICASONE PROPIONATE [Concomitant]
     Active Substance: FLUTICASONE PROPIONATE
  17. ISOSORBIDE [Concomitant]
     Active Substance: ISOSORBIDE
  18. MAGNESIUM [Concomitant]
     Active Substance: MAGNESIUM
  19. LOVASTATIN [Concomitant]
     Active Substance: LOVASTATIN
  20. OMEGA-3 FATTY ACIDS [Concomitant]
     Active Substance: OMEGA-3 FATTY ACIDS
  21. NITROSTAT [Concomitant]
     Active Substance: NITROGLYCERIN
  22. OMEPRAZOLE [Concomitant]
     Active Substance: OMEPRAZOLE
  23. PREDNISONE [Concomitant]
     Active Substance: PREDNISONE
  24. CARAFATE [Concomitant]
     Active Substance: SUCRALFATE
  25. POTASSIUM [Concomitant]
     Active Substance: POTASSIUM
  26. PROBIOTIC [BIFIDOBACTERIUM BIFIDUM;BIFIDOBACTERIUM LACTIS;BIFIDOBACTER [Concomitant]
  27. VITAMIN E [Concomitant]
     Active Substance: .ALPHA.-TOCOPHEROL
  28. UMECLIDINIUM BROMIDE\VILANTEROL TRIFENATATE [Concomitant]
     Active Substance: UMECLIDINIUM BROMIDE\VILANTEROL TRIFENATATE
  29. MOBIC [Concomitant]
     Active Substance: MELOXICAM

REACTIONS (4)
  - Condition aggravated [Unknown]
  - Pain in extremity [Recovering/Resolving]
  - Arthralgia [Recovering/Resolving]
  - Myalgia [Recovering/Resolving]
